FAERS Safety Report 8969460 (Version 3)
Quarter: 2013Q1

REPORT INFORMATION
  Report Type: Spontaneous
  Country: JP (occurrence: JP)
  Receive Date: 20121218
  Receipt Date: 20130206
  Transmission Date: 20140127
  Serious: Yes (Death, Hospitalization)
  Sender: FDA-Public Use
  Company Number: JP-AMGEN-JPNSP2012078947

PATIENT
  Age: 67 Year
  Sex: Male
  Weight: 68 kg

DRUGS (13)
  1. RANMARK [Suspect]
     Indication: METASTASES TO BONE
     Dosage: 120 MG, UNK
     Route: 058
     Dates: start: 20120705, end: 20120810
  2. TS-1 [Concomitant]
     Dosage: UNKNOWN
     Route: 065
  3. OXYCONTIN [Concomitant]
     Indication: CANCER PAIN
     Route: 048
     Dates: start: 20120617, end: 20120821
  4. ROPION [Concomitant]
     Route: 041
     Dates: start: 20120810, end: 20120810
  5. NEXIUM [Concomitant]
     Indication: PROPHYLAXIS AGAINST GASTROINTESTINAL ULCER
     Route: 048
     Dates: start: 20120618, end: 20121020
  6. LOXONIN [Concomitant]
     Indication: CANCER PAIN
     Route: 048
     Dates: start: 20120618, end: 20120813
  7. MAGNESIUM OXIDE [Concomitant]
     Indication: CONSTIPATION
     Route: 048
     Dates: start: 20120628, end: 20121020
  8. LYRICA [Concomitant]
     Indication: CANCER PAIN
     Route: 048
     Dates: start: 20120614, end: 20121020
  9. LASIX [Concomitant]
     Indication: OEDEMA
     Route: 048
     Dates: start: 20120721, end: 20121020
  10. DECADRON [Concomitant]
     Indication: DECREASED APPETITE
     Route: 048
     Dates: start: 20120630, end: 20121020
  11. MYSLEE [Concomitant]
     Indication: INSOMNIA
     Route: 048
     Dates: start: 20120705, end: 20121020
  12. AMOXAN [Concomitant]
     Indication: CANCER PAIN
     Route: 048
     Dates: start: 20120725, end: 20121020
  13. ASPARA-CA [Concomitant]
     Indication: METASTASES TO BONE
     Route: 048
     Dates: start: 20120719, end: 20121020

REACTIONS (4)
  - Neoplasm malignant [Fatal]
  - Hepatic function abnormal [Recovered/Resolved]
  - Renal impairment [Recovered/Resolved]
  - Hyperkalaemia [Recovered/Resolved]
